FAERS Safety Report 24535547 (Version 2)
Quarter: 2025Q3

REPORT INFORMATION
  Report Type: Spontaneous
  Country: EU (occurrence: EU)
  Receive Date: 20241022
  Receipt Date: 20250806
  Transmission Date: 20251021
  Serious: Yes (Other)
  Sender: MYLAN
  Company Number: EU-SUN PHARMACEUTICAL INDUSTRIES LTD-2024RR-472274

PATIENT
  Age: 52 Year
  Sex: Male

DRUGS (6)
  1. ZOLEDRONIC ACID [Suspect]
     Active Substance: ZOLEDRONIC ACID
     Indication: Chemotherapy
  2. PEMETREXED [Suspect]
     Active Substance: PEMETREXED
     Indication: Chemotherapy
  3. CARBOPLATIN [Suspect]
     Active Substance: CARBOPLATIN
     Indication: Chemotherapy
  4. DOCETAXEL [Suspect]
     Active Substance: DOCETAXEL
     Indication: Chemotherapy
  5. NINTEDANIB [Suspect]
     Active Substance: NINTEDANIB
     Indication: Chemotherapy
  6. PEMBROLIZUMAB [Suspect]
     Active Substance: PEMBROLIZUMAB
     Indication: Chemotherapy

REACTIONS (2)
  - Renal impairment [Unknown]
  - Therapeutic product effect incomplete [Unknown]
